FAERS Safety Report 7207975-6 (Version None)
Quarter: 2010Q4

REPORT INFORMATION
  Report Type: 
  Country: None (occurrence: None)
  Receive Date: 20101222
  Receipt Date: 20101210
  Transmission Date: 20110411
  Serious: Yes (Hospitalization)
  Sender: FDA-Public Use
  Company Number: UTC-003181

PATIENT
  Age: 82 Year
  Sex: Female
  Weight: 95.5 kg

DRUGS (1)
  1. TYVASO [Suspect]
     Dosage: 144 MCG (36 MCG, 4 IN 1 D), INHALATION
     Route: 055
     Dates: start: 20101103

REACTIONS (2)
  - COUGH [None]
  - FLUID OVERLOAD [None]
